FAERS Safety Report 5405543-X (Version None)
Quarter: 2007Q3

REPORT INFORMATION
  Report Type: 
  Country: None (occurrence: None)
  Receive Date: 20070803
  Receipt Date: 20070724
  Transmission Date: 20080115
  Serious: Yes (Hospitalization, Other)
  Sender: FDA-Public Use
  Company Number: US-PFIZER INC-2007062629

PATIENT
  Sex: Female
  Weight: 142.9 kg

DRUGS (5)
  1. LIPITOR [Suspect]
     Indication: BLOOD CHOLESTEROL INCREASED
  2. CELEBREX [Suspect]
     Indication: ARTHRITIS
  3. ATENOLOL [Concomitant]
  4. ACCUPRIL [Concomitant]
  5. AMILORIDE HCL AND HYDROCHLOROTHIAZIDE [Concomitant]
     Dosage: TEXT:5/50MG

REACTIONS (2)
  - DRUG INEFFECTIVE [None]
  - WEIGHT DECREASED [None]
